FAERS Safety Report 5762496-2 (Version None)
Quarter: 2008Q2

REPORT INFORMATION
  Report Type: 
  Country: None (occurrence: None)
  Receive Date: 20080609
  Receipt Date: 20080528
  Transmission Date: 20081010
  Serious: Yes (Life-Threatening, Hospitalization, Disabling)
  Sender: FDA-Public Use
  Company Number: A0724563A

PATIENT
  Age: 30 Year
  Sex: Female

DRUGS (2)
  1. LAMICTAL [Suspect]
     Indication: DRUG USE FOR UNKNOWN INDICATION
     Dosage: 25MG PER DAY
     Route: 048
     Dates: start: 20080420, end: 20080423
  2. PROGESTERONE TABLETS [Suspect]
     Indication: CONTRACEPTION
     Route: 048
     Dates: end: 20080101

REACTIONS (3)
  - DRUG INTERACTION [None]
  - THROMBOSIS [None]
  - VISION BLURRED [None]
